FAERS Safety Report 4314864-3 (Version None)
Quarter: 2004Q1

REPORT INFORMATION
  Report Type: 
  Country: None (occurrence: None)
  Receive Date: 20040308
  Receipt Date: 20040224
  Transmission Date: 20041129
  Serious: Yes (Hospitalization)
  Sender: FDA-Public Use
  Company Number: 2004-BP-01438YA

PATIENT
  Age: 74 Year
  Sex: Male

DRUGS (12)
  1. TAMSULOSIN [Suspect]
     Dosage: 0.4 MG PO
     Route: 048
     Dates: end: 20040120
  2. KARDEGIC (ACETYLSALICYLATE LYSINE) (NR) [Suspect]
     Dosage: 75 MG PO
     Route: 048
     Dates: end: 20040120
  3. ZOLPIDEM TARTRATE [Suspect]
     Dosage: 10 MG PO
     Route: 048
  4. BRONCHODUAL (DUOVENT) [Concomitant]
     Dosage: 1 PF IH
     Route: 055
     Dates: end: 20040120
  5. DISCOTRINE (GLYCERYL TRINITRATE) (NR) [Suspect]
     Dosage: 10 MG TD
     Route: 062
  6. UNICORDIUM (BEPRIDIL HYDROCHLORIDE MONOHYDRATE) (NR) [Suspect]
     Dosage: 100 MG PO
     Route: 048
     Dates: end: 20040120
  7. SERETIDE MITE (SERETIDE MITE) [Concomitant]
  8. ADRAFINIL (ADRAFINIL) [Concomitant]
  9. ACETYLCYSTEINE [Concomitant]
  10. FENSPIRIDE HYDROCHLORIDE (FENSPIRIDE HYDROCHLORIDE) [Concomitant]
  11. NICERGOLINE (NICERGOLINE) [Concomitant]
  12. NIMESULIDE (NIMESULIDE) [Concomitant]

REACTIONS (1)
  - THROMBOCYTOPENIC PURPURA [None]
